FAERS Safety Report 24741181 (Version 2)
Quarter: 2024Q4

REPORT INFORMATION
  Report Type: Spontaneous
  Country: US (occurrence: US)
  Receive Date: 20241217
  Receipt Date: 20241218
  Transmission Date: 20250114
  Serious: No
  Sender: ALEXION PHARMACEUTICALS
  Company Number: US-AstraZeneca-CH-00765238A

PATIENT

DRUGS (12)
  1. BYDUREON BCISE [Suspect]
     Active Substance: EXENATIDE
     Dosage: 2 MILLIGRAM
     Route: 065
  2. BYDUREON BCISE [Suspect]
     Active Substance: EXENATIDE
     Dosage: 2 MILLIGRAM
     Route: 065
  3. BYDUREON BCISE [Suspect]
     Active Substance: EXENATIDE
     Dosage: 2 MILLIGRAM
     Route: 065
  4. BYDUREON BCISE [Suspect]
     Active Substance: EXENATIDE
     Dosage: 2 MILLIGRAM
     Route: 065
  5. BYETTA [Suspect]
     Active Substance: EXENATIDE
     Dosage: UNK MICROGRAM
     Route: 065
  6. BYETTA [Suspect]
     Active Substance: EXENATIDE
     Dosage: UNK MICROGRAM
     Route: 065
  7. BYETTA [Suspect]
     Active Substance: EXENATIDE
     Dosage: UNK MICROGRAM
     Route: 065
  8. BYETTA [Suspect]
     Active Substance: EXENATIDE
     Dosage: UNK MICROGRAM
     Route: 065
  9. OZEMPIC [Concomitant]
     Active Substance: SEMAGLUTIDE
     Route: 065
  10. OZEMPIC [Concomitant]
     Active Substance: SEMAGLUTIDE
     Route: 065
  11. REALTA [Concomitant]
     Route: 065
  12. REALTA [Concomitant]
     Route: 065

REACTIONS (4)
  - Memory impairment [Unknown]
  - Tremor [Recovered/Resolved]
  - Weight decreased [Unknown]
  - Therapy cessation [Unknown]
